FAERS Safety Report 16155154 (Version 3)
Quarter: 2019Q2

REPORT INFORMATION
  Report Type: Report from Study
  Country: US (occurrence: US)
  Receive Date: 20190403
  Receipt Date: 20190527
  Transmission Date: 20190711
  Serious: Yes (Other)
  Sender: FDA-Public Use
  Company Number: US-TAKEDA-2019TUS018879

PATIENT
  Age: 47 Year
  Sex: Male

DRUGS (2)
  1. PONATINIB [Suspect]
     Active Substance: PONATINIB
     Indication: CHRONIC MYELOID LEUKAEMIA
     Dosage: 15 MILLIGRAM, QD
     Route: 048
     Dates: start: 20181219
  2. PONATINIB [Suspect]
     Active Substance: PONATINIB
     Dosage: 30 MILLIGRAM, QD
     Route: 048
     Dates: start: 201812

REACTIONS (17)
  - Lung infection [Unknown]
  - Musculoskeletal pain [Unknown]
  - Sepsis [Unknown]
  - Insomnia [Unknown]
  - Constipation [Unknown]
  - Myalgia [Unknown]
  - Rash macular [Unknown]
  - Cough [Unknown]
  - Eating disorder [Unknown]
  - Feeling abnormal [Unknown]
  - Chronic myeloid leukaemia [Unknown]
  - Nodule [Unknown]
  - Paraesthesia [Unknown]
  - Throat irritation [Unknown]
  - Anaemia [Unknown]
  - Rash [Unknown]
  - Dyspnoea [Unknown]

NARRATIVE: CASE EVENT DATE: 20190116
